FAERS Safety Report 13874852 (Version 2)
Quarter: 2017Q4

REPORT INFORMATION
  Report Type: Report from Study
  Country: None (occurrence: US)
  Receive Date: 20170816
  Receipt Date: 20171123
  Transmission Date: 20180320
  Serious: Yes (Hospitalization)
  Sender: FDA-Public Use
  Company Number: US-VIFOR (INTERNATIONAL) INC.-VIT-2017-08636

PATIENT
  Age: 59 Year
  Sex: Female
  Weight: 71.28 kg

DRUGS (17)
  1. LISINOPRIL. [Concomitant]
     Active Substance: LISINOPRIL
  2. RENVELA [Concomitant]
     Active Substance: SEVELAMER CARBONATE
  3. NOVOLIN [Concomitant]
     Active Substance: INSULIN HUMAN
  4. METOPROLOL. [Concomitant]
     Active Substance: METOPROLOL
  5. SENNOSIDE A+B [Concomitant]
     Active Substance: SENNOSIDES A AND B
  6. ASCORBIC ACID. [Concomitant]
     Active Substance: ASCORBIC ACID
  7. CLONIDINE. [Concomitant]
     Active Substance: CLONIDINE
  8. NIFEDICAL XL [Concomitant]
     Active Substance: NIFEDIPINE
  9. ATORVASTATIN [Concomitant]
     Active Substance: ATORVASTATIN
  10. VELTASSA [Suspect]
     Active Substance: PATIROMER
     Indication: HYPERKALAEMIA
     Route: 048
     Dates: start: 20160429
  11. HUMALOG [Concomitant]
     Active Substance: INSULIN LISPRO
  12. SODIUM CITRATE. [Concomitant]
     Active Substance: SODIUM CITRATE
  13. AMITRIPTYLIN [Concomitant]
     Active Substance: AMITRIPTYLINE
  14. FUROSEMIDE. [Concomitant]
     Active Substance: FUROSEMIDE
  15. LEVOTHYROXINE. [Concomitant]
     Active Substance: LEVOTHYROXINE
  16. ONDANSETRON [Concomitant]
     Active Substance: ONDANSETRON
  17. ACETYLSALICYLIC ACID [Concomitant]
     Active Substance: ASPIRIN

REACTIONS (4)
  - Treatment noncompliance [Unknown]
  - Colitis [Recovering/Resolving]
  - Haemoglobin decreased [Recovering/Resolving]
  - Renal disorder [Recovering/Resolving]

NARRATIVE: CASE EVENT DATE: 201706
